FAERS Safety Report 21401477 (Version 4)
Quarter: 2022Q4

REPORT INFORMATION
  Report Type: Report from Study
  Country: KR (occurrence: KR)
  Receive Date: 20221003
  Receipt Date: 20221019
  Transmission Date: 20230113
  Serious: Yes (Hospitalization)
  Sender: FDA-Public Use
  Company Number: KR-NOVARTISPH-NVSC2022KR221773

PATIENT
  Age: 58 Year
  Sex: Male
  Weight: 58.05 kg

DRUGS (3)
  1. ZANIDATAMAB [Suspect]
     Active Substance: ZANIDATAMAB
     Indication: Gastric cancer
     Dosage: 1860 MG, Q3WK
     Route: 042
     Dates: start: 20201119, end: 20220907
  2. TISLELIZUMAB [Suspect]
     Active Substance: TISLELIZUMAB
     Indication: Gastric cancer
     Dosage: 200 MG, Q3WK
     Route: 042
     Dates: start: 20201119, end: 20220910
  3. CAPECITABINE [Suspect]
     Active Substance: CAPECITABINE
     Indication: Gastric cancer
     Dosage: 1750 MG, BID
     Route: 048
     Dates: start: 20201119, end: 20220907

REACTIONS (1)
  - Colitis [Recovered/Resolved]

NARRATIVE: CASE EVENT DATE: 20220926
